FAERS Safety Report 6341866-8 (Version None)
Quarter: 2009Q3

REPORT INFORMATION
  Report Type: 
  Country: None (occurrence: None)
  Receive Date: 20090904
  Receipt Date: 20090828
  Transmission Date: 20100115
  Serious: Yes (Other)
  Sender: FDA-Public Use
  Company Number: US-AMGEN-QUU358427

PATIENT
  Sex: Female

DRUGS (3)
  1. ENBREL [Suspect]
     Indication: RHEUMATOID ARTHRITIS
     Route: 058
     Dates: start: 20090424
  2. METHOTREXATE [Concomitant]
     Dates: start: 20090301
  3. PLAQUENIL [Concomitant]
     Dates: start: 20090301

REACTIONS (5)
  - ASTHENIA [None]
  - BALANCE DISORDER [None]
  - DIARRHOEA [None]
  - FALL [None]
  - INJECTION SITE HAEMATOMA [None]
